FAERS Safety Report 7272066-5 (Version None)
Quarter: 2011Q1

REPORT INFORMATION
  Report Type: 
  Country: None (occurrence: None)
  Receive Date: 20110203
  Receipt Date: 20110121
  Transmission Date: 20110831
  Serious: Yes (Hospitalization)
  Sender: FDA-Public Use
  Company Number: JP-AMGEN-US387559

PATIENT
  Age: 65 Year
  Sex: Male
  Weight: 51 kg

DRUGS (21)
  1. PREDONINE [Suspect]
     Dosage: UNK
     Route: 048
     Dates: start: 20080425
  2. PREDONINE [Suspect]
     Dosage: 7 MG, QD
     Route: 048
     Dates: start: 20090724, end: 20100204
  3. NORVASC [Concomitant]
     Dosage: UNK UNK, UNK
     Route: 048
  4. FOSAMAX [Concomitant]
     Dosage: UNK UNK, UNK
     Route: 048
  5. RIMATIL [Concomitant]
     Dosage: 300 MG, QD
     Route: 048
     Dates: end: 20100808
  6. ENBREL [Suspect]
     Indication: RHEUMATOID ARTHRITIS
     Dosage: 25 MG, 2 TIMES/WK
     Route: 058
     Dates: start: 20071212, end: 20080213
  7. ADALAT [Concomitant]
     Dosage: UNK UNK, UNK
     Route: 048
  8. ARTIST [Concomitant]
     Dosage: UNK UNK, UNK
     Route: 048
  9. ITRIZOLE [Concomitant]
     Dosage: UNK UNK, UNK
     Route: 048
  10. ISONIAZID [Concomitant]
     Dosage: UNK UNK, UNK
     Route: 048
  11. ENBREL [Suspect]
     Dosage: 25 MG, 2 TIMES/WK
     Route: 058
     Dates: start: 20090826
  12. PREDONINE [Suspect]
     Dosage: 6 MG, QD
     Route: 048
     Dates: start: 20081017, end: 20090723
  13. PREDONINE [Suspect]
     Dosage: 4 MG, QD
     Route: 048
     Dates: start: 20100205, end: 20100401
  14. ENBREL [Suspect]
     Dosage: 25 MG, 2 TIMES/WK
     Route: 058
     Dates: start: 20080220, end: 20080825
  15. PREDONINE [Suspect]
     Dosage: 3 MG, QD
     Route: 048
     Dates: start: 20100820, end: 20100916
  16. VOLTAREN [Concomitant]
     Dosage: UNK UNK, UNK
     Route: 048
  17. ACTONEL [Concomitant]
     Dosage: UNK UNK, UNK
     Route: 048
  18. PREDONINE [Suspect]
     Indication: RHEUMATOID ARTHRITIS
     Dosage: UNK MG, UNK
     Route: 048
     Dates: end: 20080424
  19. PREDONINE [Suspect]
     Dosage: 3 MG, QD
     Route: 048
     Dates: start: 20100402, end: 20100808
  20. PREDONINE [Suspect]
     Dosage: 2 MG, QD
     Dates: start: 20100917
  21. FAMOTIDINE [Concomitant]
     Dosage: UNK UNK, UNK
     Route: 048

REACTIONS (2)
  - AORTIC DISSECTION RUPTURE [None]
  - PNEUMONIA [None]
